FAERS Safety Report 26091576 (Version 1)
Quarter: 2025Q4

REPORT INFORMATION
  Report Type: Spontaneous
  Country: EU (occurrence: EU)
  Receive Date: 20251126
  Receipt Date: 20251126
  Transmission Date: 20260118
  Serious: Yes (Other)
  Sender: BAUSCH AND LOMB
  Company Number: EU-ABBVIE-6545574

PATIENT
  Age: 64 Year
  Sex: Female

DRUGS (4)
  1. BRIMONIDINE TARTRATE [Suspect]
     Active Substance: BRIMONIDINE TARTRATE
     Indication: Intraocular pressure test abnormal
     Route: 047
  2. BRINZOLAMIDE [Suspect]
     Active Substance: BRINZOLAMIDE
     Indication: Intraocular pressure test abnormal
     Route: 047
  3. TAFLUPROST [Suspect]
     Active Substance: TAFLUPROST
     Indication: Intraocular pressure test abnormal
  4. TIMOLOL [Suspect]
     Active Substance: TIMOLOL
     Indication: Intraocular pressure test abnormal
     Route: 047

REACTIONS (3)
  - Glaucoma [Recovered/Resolved]
  - Therapeutic product effect incomplete [Unknown]
  - Therapeutic product effect incomplete [Unknown]
